FAERS Safety Report 4629371-8 (Version None)
Quarter: 2005Q2

REPORT INFORMATION
  Report Type: 
  Country: None (occurrence: None)
  Receive Date: 20050405
  Receipt Date: 20050324
  Transmission Date: 20051028
  Serious: Yes (Hospitalization, Other)
  Sender: FDA-Public Use
  Company Number: NLWYE533624MAR05

PATIENT
  Sex: Female

DRUGS (1)
  1. PREMELLE (CONJUGATED ESTROGENS/ MEDROXYPROGESTERONE ACETATE, TABLET, 0 [Suspect]
     Dosage: 1 TABLET 1X PER 1 DAY ORAL
     Route: 048
     Dates: start: 20010101

REACTIONS (2)
  - CERVIX CARCINOMA [None]
  - PAPILLOMA VIRAL INFECTION [None]
